FAERS Safety Report 4345900-6 (Version None)
Quarter: 2004Q2

REPORT INFORMATION
  Report Type: 
  Country: None (occurrence: None)
  Receive Date: 20040421
  Receipt Date: 20040405
  Transmission Date: 20050107
  Serious: Yes (Hospitalization)
  Sender: FDA-Public Use
  Company Number: 190763

PATIENT
  Age: 61 Year
  Sex: Female

DRUGS (2)
  1. AVONEX [Suspect]
     Indication: MULTIPLE SCLEROSIS
     Dosage: 30 MCG QW IM
     Route: 030
  2. AVONEX [Suspect]
     Indication: MULTIPLE SCLEROSIS
     Dosage: 30 MCG QW IM
     Route: 030

REACTIONS (8)
  - ABASIA [None]
  - BACK DISORDER [None]
  - BACK PAIN [None]
  - BLADDER OPERATION [None]
  - DYSSTASIA [None]
  - INFECTION [None]
  - INFLUENZA LIKE ILLNESS [None]
  - POST PROCEDURAL COMPLICATION [None]
